FAERS Safety Report 14628637 (Version 1)
Quarter: 2018Q1

REPORT INFORMATION
  Report Type: Spontaneous
  Country: US (occurrence: US)
  Receive Date: 20180313
  Receipt Date: 20180313
  Transmission Date: 20180509
  Serious: Yes (Hospitalization)
  Sender: FDA-Public Use
  Company Number: US-ENDO PHARMACEUTICALS INC-2018-022741

PATIENT
  Age: 36 Year
  Sex: Female

DRUGS (2)
  1. DOXYCYCLINE HYCLATE 100MG [Suspect]
     Active Substance: DOXYCYCLINE HYCLATE
     Indication: UREAPLASMA INFECTION
     Dosage: UNK UNK, UNKNOWN
     Route: 065
  2. DOXYCYCLINE HYCLATE 100MG [Suspect]
     Active Substance: DOXYCYCLINE HYCLATE
     Indication: GENITOURINARY TRACT INFECTION

REACTIONS (1)
  - Acute hepatic failure [Unknown]
